FAERS Safety Report 6729399-8 (Version None)
Quarter: 2010Q2

REPORT INFORMATION
  Report Type: 
  Country: None (occurrence: None)
  Receive Date: 20100518
  Receipt Date: 20100511
  Transmission Date: 20101027
  Serious: Yes (Other)
  Sender: FDA-Public Use
  Company Number: US-BIOGENIDEC-2010BI013284

PATIENT
  Age: 26 Year
  Sex: Female

DRUGS (3)
  1. TYSABRI [Suspect]
     Indication: MULTIPLE SCLEROSIS
     Route: 042
     Dates: start: 20090310, end: 20100209
  2. TYSABRI [Suspect]
     Route: 042
     Dates: start: 20070510, end: 20090205
  3. PRENATAL VITAMINS [Concomitant]

REACTIONS (2)
  - PRE-ECLAMPSIA [None]
  - PREGNANCY [None]
